FAERS Safety Report 6642889-1 (Version None)
Quarter: 2010Q1

REPORT INFORMATION
  Report Type: 
  Country: None (occurrence: None)
  Receive Date: 20100319
  Receipt Date: 20100305
  Transmission Date: 20100710
  Serious: Yes (Hospitalization)
  Sender: FDA-Public Use
  Company Number: TR-ELI_LILLY_AND_COMPANY-TR200907004398

PATIENT
  Age: 39 Year
  Sex: Female

DRUGS (6)
  1. HUMULIN R [Suspect]
     Indication: GESTATIONAL DIABETES
     Dosage: 8 IU, EACH MORNING
     Route: 058
     Dates: start: 20090315, end: 20091015
  2. HUMULIN R [Suspect]
     Dosage: 10 IU, OTHER
     Route: 058
     Dates: start: 20090315, end: 20091015
  3. HUMULIN R [Suspect]
     Dosage: 10 IU, EACH EVENING
     Route: 058
     Dates: start: 20090315, end: 20091015
  4. HUMULIN N [Suspect]
     Indication: GESTATIONAL DIABETES
     Dosage: 9 IU, DAILY (1/D)
     Route: 058
     Dates: start: 20090315, end: 20091015
  5. IRON IN COMBINATION WITH FOLIC ACID [Concomitant]
     Dosage: UNK, DAILY (1/D)
     Route: 048
  6. ZOFRAN [Concomitant]
     Dosage: UNK, UNK
     Route: 048

REACTIONS (2)
  - ASTHENIA [None]
  - DRUG EXPOSURE DURING PREGNANCY [None]
